FAERS Safety Report 6107093-4 (Version None)
Quarter: 2009Q1

REPORT INFORMATION
  Report Type: 
  Country: None (occurrence: None)
  Receive Date: 20090305
  Receipt Date: 20090305
  Transmission Date: 20090719
  Serious: Yes (Hospitalization)
  Sender: FDA-Public Use
  Company Number: None

PATIENT
  Sex: Female

DRUGS (1)
  1. SIMVASTATIN [Suspect]
     Dosage: 40 MG DAILY PO 80 MG DAILY PO 20 MG DAILY PO SEE ABOVE
     Route: 048

REACTIONS (5)
  - LIVER DISORDER [None]
  - MYOCARDIAL INFARCTION [None]
  - PRODUCT QUALITY ISSUE [None]
  - RENAL FAILURE [None]
  - RHABDOMYOLYSIS [None]
